FAERS Safety Report 25368242 (Version 1)
Quarter: 2025Q2

REPORT INFORMATION
  Report Type: Spontaneous
  Country: US (occurrence: US)
  Receive Date: 20250528
  Receipt Date: 20250528
  Transmission Date: 20250717
  Serious: Yes (Hospitalization)
  Sender: MYLAN
  Company Number: US-MYLANLABS-2025M1044221

PATIENT
  Age: 17 Year
  Sex: Male

DRUGS (40)
  1. METHYLPHENIDATE [Suspect]
     Active Substance: METHYLPHENIDATE
     Indication: Depression
  2. METHYLPHENIDATE [Suspect]
     Active Substance: METHYLPHENIDATE
     Route: 065
  3. METHYLPHENIDATE [Suspect]
     Active Substance: METHYLPHENIDATE
     Route: 065
  4. METHYLPHENIDATE [Suspect]
     Active Substance: METHYLPHENIDATE
  5. AMANTADINE [Suspect]
     Active Substance: AMANTADINE
     Indication: Catatonia
     Dosage: 200 MILLIGRAM, BID
  6. AMANTADINE [Suspect]
     Active Substance: AMANTADINE
     Dosage: 200 MILLIGRAM, BID
     Route: 065
  7. AMANTADINE [Suspect]
     Active Substance: AMANTADINE
     Dosage: 200 MILLIGRAM, BID
     Route: 065
  8. AMANTADINE [Suspect]
     Active Substance: AMANTADINE
     Dosage: 200 MILLIGRAM, BID
  9. MIRTAZAPINE [Suspect]
     Active Substance: MIRTAZAPINE
     Indication: Depression
     Route: 065
  10. MIRTAZAPINE [Suspect]
     Active Substance: MIRTAZAPINE
  11. MIRTAZAPINE [Suspect]
     Active Substance: MIRTAZAPINE
  12. MIRTAZAPINE [Suspect]
     Active Substance: MIRTAZAPINE
     Route: 065
  13. MIRTAZAPINE [Suspect]
     Active Substance: MIRTAZAPINE
     Route: 065
  14. MIRTAZAPINE [Suspect]
     Active Substance: MIRTAZAPINE
  15. MIRTAZAPINE [Suspect]
     Active Substance: MIRTAZAPINE
  16. MIRTAZAPINE [Suspect]
     Active Substance: MIRTAZAPINE
     Route: 065
  17. MIRTAZAPINE [Suspect]
     Active Substance: MIRTAZAPINE
  18. MIRTAZAPINE [Suspect]
     Active Substance: MIRTAZAPINE
  19. MIRTAZAPINE [Suspect]
     Active Substance: MIRTAZAPINE
     Route: 065
  20. MIRTAZAPINE [Suspect]
     Active Substance: MIRTAZAPINE
     Route: 065
  21. MIRTAZAPINE [Suspect]
     Active Substance: MIRTAZAPINE
  22. MIRTAZAPINE [Suspect]
     Active Substance: MIRTAZAPINE
  23. MIRTAZAPINE [Suspect]
     Active Substance: MIRTAZAPINE
     Route: 065
  24. MIRTAZAPINE [Suspect]
     Active Substance: MIRTAZAPINE
     Route: 065
  25. ESCITALOPRAM [Concomitant]
     Active Substance: ESCITALOPRAM OXALATE
     Indication: Depression
  26. ESCITALOPRAM [Concomitant]
     Active Substance: ESCITALOPRAM OXALATE
     Route: 065
  27. ESCITALOPRAM [Concomitant]
     Active Substance: ESCITALOPRAM OXALATE
     Route: 065
  28. ESCITALOPRAM [Concomitant]
     Active Substance: ESCITALOPRAM OXALATE
  29. ZOLPIDEM [Concomitant]
     Active Substance: ZOLPIDEM TARTRATE
     Indication: Product used for unknown indication
     Dosage: 25 MILLIGRAM, QD, IN DIVIDED DOSING
  30. ZOLPIDEM [Concomitant]
     Active Substance: ZOLPIDEM TARTRATE
     Dosage: 25 MILLIGRAM, QD, IN DIVIDED DOSING
     Route: 065
  31. ZOLPIDEM [Concomitant]
     Active Substance: ZOLPIDEM TARTRATE
     Dosage: 25 MILLIGRAM, QD, IN DIVIDED DOSING
     Route: 065
  32. ZOLPIDEM [Concomitant]
     Active Substance: ZOLPIDEM TARTRATE
     Dosage: 25 MILLIGRAM, QD, IN DIVIDED DOSING
  33. LACOSAMIDE [Concomitant]
     Active Substance: LACOSAMIDE
     Indication: Seizure
     Dosage: 50 MILLIGRAM, BID
  34. LACOSAMIDE [Concomitant]
     Active Substance: LACOSAMIDE
     Dosage: 50 MILLIGRAM, BID
     Route: 065
  35. LACOSAMIDE [Concomitant]
     Active Substance: LACOSAMIDE
     Dosage: 50 MILLIGRAM, BID
     Route: 065
  36. LACOSAMIDE [Concomitant]
     Active Substance: LACOSAMIDE
     Dosage: 50 MILLIGRAM, BID
  37. MELATONIN [Concomitant]
     Active Substance: MELATONIN
     Indication: Product used for unknown indication
     Dosage: 3 MILLIGRAM, AT BEDTIME
  38. MELATONIN [Concomitant]
     Active Substance: MELATONIN
     Dosage: 3 MILLIGRAM, AT BEDTIME
     Route: 065
  39. MELATONIN [Concomitant]
     Active Substance: MELATONIN
     Dosage: 3 MILLIGRAM, AT BEDTIME
     Route: 065
  40. MELATONIN [Concomitant]
     Active Substance: MELATONIN
     Dosage: 3 MILLIGRAM, AT BEDTIME

REACTIONS (1)
  - Hyperkinesia [Recovering/Resolving]
